FAERS Safety Report 8415090-9 (Version None)
Quarter: 2012Q2

REPORT INFORMATION
  Report Type: 
  Country: None (occurrence: None)
  Receive Date: 20120530
  Receipt Date: 20120521
  Transmission Date: 20120825
  Serious: Yes (Death, Hospitalization)
  Sender: FDA-Public Use
  Company Number: DSA_56089_2012

PATIENT
  Age: 76 Year
  Sex: Female

DRUGS (9)
  1. XENAZINE [Suspect]
     Indication: HUNTINGTON'S DISEASE
     Dosage: (25 MG BID ORAL), (12.5MG IN THE MORNING AND 25MG AT NIGHT ORAL)
     Route: 048
     Dates: start: 20081002, end: 20090617
  2. XENAZINE [Suspect]
     Indication: HUNTINGTON'S DISEASE
     Dosage: (25 MG BID ORAL), (12.5MG IN THE MORNING AND 25MG AT NIGHT ORAL)
     Route: 048
     Dates: start: 20090618, end: 20120328
  3. PRISTQ [Concomitant]
  4. AMANTADINE HCL [Concomitant]
  5. COQ10 [Concomitant]
  6. SULFAMIDE [Concomitant]
  7. CLONAZEPAM [Concomitant]
  8. ZOLOFT [Concomitant]
  9. ADULT LOW STRENGTH [Concomitant]

REACTIONS (10)
  - URINARY TRACT INFECTION [None]
  - PULMONARY EMBOLISM [None]
  - ANAEMIA [None]
  - PULMONARY INFARCTION [None]
  - DEPRESSION [None]
  - HYPOKALAEMIA [None]
  - HYPOXIA [None]
  - DECUBITUS ULCER [None]
  - ASPIRATION [None]
  - DEEP VEIN THROMBOSIS [None]
